FAERS Safety Report 9548665 (Version 1)
Quarter: 2013Q3

REPORT INFORMATION
  Report Type: Spontaneous
  Country: US (occurrence: None)
  Receive Date: 20130923
  Receipt Date: 20130923
  Transmission Date: 20140515
  Serious: Yes (Life-Threatening, Hospitalization, Other)
  Sender: FDA-Public Use
  Company Number: None

PATIENT
  Age: 83 Year
  Sex: Female
  Weight: 56.7 kg

DRUGS (1)
  1. OXAZEPAM [Suspect]
     Indication: TREMOR
     Dosage: TAKEN BY MOUTH
     Route: 048
     Dates: start: 2002, end: 2013

REACTIONS (2)
  - Shock [None]
  - Asthenia [None]
